FAERS Safety Report 4871480-2 (Version None)
Quarter: 2005Q4

REPORT INFORMATION
  Report Type: 
  Country: None (occurrence: None)
  Receive Date: 20051229
  Receipt Date: 20051213
  Transmission Date: 20060501
  Serious: Yes (Hospitalization, Disabling, Other)
  Sender: FDA-Public Use
  Company Number: USA0511112767

PATIENT
  Age: 66 Year
  Sex: Female

DRUGS (2)
  1. HUMULIN L [Suspect]
     Indication: DIABETES MELLITUS
     Dosage: UNK, AS NEEDED, UNK
     Route: 065
  2. HUMULIN R [Suspect]
     Indication: DIABETES MELLITUS
     Dosage: 10 U, 2/D, UNK
     Route: 065

REACTIONS (6)
  - CORONARY ARTERY OCCLUSION [None]
  - MACULAR DEGENERATION [None]
  - POST PROCEDURAL COMPLICATION [None]
  - SCOTOMA [None]
  - SKIN ULCER [None]
  - VASCULAR BYPASS GRAFT [None]
